FAERS Safety Report 10267698 (Version 1)
Quarter: 2014Q2

REPORT INFORMATION
  Report Type: Report from Study
  Country: IT (occurrence: IT)
  Receive Date: 20140630
  Receipt Date: 20140630
  Transmission Date: 20141212
  Serious: Yes (Hospitalization)
  Sender: FDA-Public Use
  Company Number: IT-SA-2014SA081775

PATIENT
  Age: 8 Year
  Sex: Male
  Weight: 28 kg

DRUGS (9)
  1. EVOLTRA [Suspect]
     Indication: ACUTE LYMPHOCYTIC LEUKAEMIA
     Route: 065
     Dates: start: 20140411, end: 20140415
  2. ETOPOSIDE [Concomitant]
     Indication: ACUTE LYMPHOCYTIC LEUKAEMIA
     Route: 065
     Dates: start: 20140411, end: 20140415
  3. CYCLOPHOSPHAMIDE [Concomitant]
     Indication: ACUTE LYMPHOCYTIC LEUKAEMIA
     Route: 065
     Dates: start: 20140411, end: 20140415
  4. AMBISOME [Concomitant]
     Indication: PYREXIA
     Route: 042
     Dates: start: 20140423, end: 20140509
  5. AMBISOME [Concomitant]
     Indication: PNEUMONIA
     Route: 042
     Dates: start: 20140423, end: 20140509
  6. LINEZOLID [Concomitant]
     Indication: PNEUMONIA
     Route: 042
     Dates: start: 20140423, end: 20140509
  7. LINEZOLID [Concomitant]
     Indication: PYREXIA
     Route: 042
     Dates: start: 20140423, end: 20140509
  8. TAZOCIN [Concomitant]
     Indication: PYREXIA
     Route: 042
     Dates: start: 20140423, end: 20140513
  9. TAZOCIN [Concomitant]
     Indication: PNEUMONIA
     Route: 042
     Dates: start: 20140423, end: 20140513

REACTIONS (4)
  - Dysphagia [Recovered/Resolved]
  - Infection [Recovered/Resolved]
  - Dyspnoea [Recovered/Resolved]
  - Diarrhoea [Recovered/Resolved]
